FAERS Safety Report 4876928-5 (Version None)
Quarter: 2006Q1

REPORT INFORMATION
  Report Type: 
  Country: None (occurrence: None)
  Receive Date: 20060110
  Receipt Date: 20051226
  Transmission Date: 20060701
  Serious: Yes (Death, Hospitalization)
  Sender: FDA-Public Use
  Company Number: FR-ROCHE-430022

PATIENT
  Age: 68 Year
  Sex: Male

DRUGS (10)
  1. VALIUM [Suspect]
     Indication: DRUG USE FOR UNKNOWN INDICATION
     Route: 065
  2. NEORECORMON [Suspect]
     Route: 058
     Dates: end: 20051112
  3. LESCOL [Suspect]
     Indication: DRUG USE FOR UNKNOWN INDICATION
     Route: 048
     Dates: end: 20051115
  4. HEXAQUINE [Suspect]
     Indication: DRUG USE FOR UNKNOWN INDICATION
     Route: 048
     Dates: end: 20051115
  5. LASILIX [Suspect]
     Route: 048
     Dates: end: 20051115
  6. CELECTOL [Suspect]
     Route: 048
     Dates: end: 20051115
  7. UN ALPHA [Suspect]
     Indication: DRUG USE FOR UNKNOWN INDICATION
     Route: 048
     Dates: end: 20051115
  8. EUROBIOL [Suspect]
     Indication: DRUG USE FOR UNKNOWN INDICATION
     Route: 065
  9. CALCIDIA [Suspect]
     Indication: DRUG USE FOR UNKNOWN INDICATION
     Route: 065
  10. TARDYFERON [Suspect]
     Indication: DRUG USE FOR UNKNOWN INDICATION
     Route: 065

REACTIONS (3)
  - ENCEPHALOPATHY [None]
  - HEADACHE [None]
  - HYPERTENSION [None]
